FAERS Safety Report 5858304-1 (Version None)
Quarter: 2008Q3

REPORT INFORMATION
  Report Type: 
  Country: None (occurrence: None)
  Receive Date: 20080826
  Receipt Date: 20080822
  Transmission Date: 20090109
  Serious: Yes (Other)
  Sender: FDA-Public Use
  Company Number: B0525801A

PATIENT
  Age: 23 Year
  Sex: Female

DRUGS (1)
  1. CLAMOXYL IV [Suspect]
     Indication: TACHYCARDIA
     Dosage: 2G SINGLE DOSE
     Route: 042
     Dates: start: 20080430, end: 20080430

REACTIONS (6)
  - ANAPHYLACTIC SHOCK [None]
  - DRUG EXPOSURE DURING PREGNANCY [None]
  - HYPOTENSION [None]
  - LIVE BIRTH [None]
  - MALAISE [None]
  - RASH [None]
